FAERS Safety Report 14741501 (Version 2)
Quarter: 2018Q2

REPORT INFORMATION
  Report Type: Report from Study
  Country: AU (occurrence: AU)
  Receive Date: 20180410
  Receipt Date: 20180423
  Transmission Date: 20180711
  Serious: Yes (Hospitalization)
  Sender: FDA-Public Use
  Company Number: AU-MYLANLABS-2018M1022923

PATIENT
  Age: 32 Year
  Sex: Female

DRUGS (1)
  1. CLOZARIL [Suspect]
     Active Substance: CLOZAPINE
     Indication: SCHIZOPHRENIA
     Dosage: 100 MG, UNK
     Route: 048
     Dates: start: 20161008

REACTIONS (9)
  - Blood lactate dehydrogenase increased [Unknown]
  - Bilirubin conjugated increased [Unknown]
  - Aspartate aminotransferase increased [Unknown]
  - Blood potassium decreased [Unknown]
  - Alanine aminotransferase increased [Unknown]
  - Hospitalisation [Unknown]
  - Blood pH increased [Unknown]
  - Lymphocyte count decreased [Unknown]
  - Base excess increased [Unknown]

NARRATIVE: CASE EVENT DATE: 20180417
